FAERS Safety Report 7108395-5 (Version None)
Quarter: 2010Q4

REPORT INFORMATION
  Report Type: 
  Country: None (occurrence: None)
  Receive Date: 20101117
  Receipt Date: 20101116
  Transmission Date: 20110411
  Serious: Yes (Life-Threatening, Hospitalization)
  Sender: FDA-Public Use
  Company Number: A0879032A

PATIENT
  Sex: Female
  Weight: 72 kg

DRUGS (9)
  1. LAPATINIB [Suspect]
     Indication: BREAST CANCER
     Dosage: 1000MG PER DAY
     Route: 048
     Dates: start: 20090330, end: 20090928
  2. TRASTUZUMAB [Suspect]
     Indication: BREAST CANCER
     Dosage: 6MGK EVERY 3 WEEKS
     Route: 042
     Dates: start: 20090330, end: 20090928
  3. BISOPROLOL FUMARATE [Concomitant]
     Dosage: 2.5MG PER DAY
     Route: 048
     Dates: start: 20090805
  4. SPIRONOLACTONE [Concomitant]
     Dosage: 25MG PER DAY
     Route: 048
     Dates: start: 20090805
  5. SALBUTAMOL [Concomitant]
     Indication: BRONCHITIS
     Dosage: 100MCG TWICE PER DAY
     Route: 055
     Dates: start: 20090703
  6. FLUTICASONE PROPIONATE [Concomitant]
     Indication: ASTHMA
     Route: 055
     Dates: start: 20090727
  7. IBUPROFEN [Concomitant]
     Dosage: 400MG EIGHT TIMES PER DAY
     Route: 048
     Dates: start: 20100802
  8. CELEBRA [Concomitant]
     Dosage: 200MG TWICE PER DAY
     Dates: start: 20100825
  9. HEDERA HELIX [Concomitant]
     Dosage: 10ML THREE TIMES PER DAY

REACTIONS (6)
  - CARDIAC ARREST [None]
  - CARDIAC FAILURE CONGESTIVE [None]
  - EJECTION FRACTION DECREASED [None]
  - HYPOXIC-ISCHAEMIC ENCEPHALOPATHY [None]
  - PNEUMONIA [None]
  - SEPSIS [None]
